FAERS Safety Report 9669599 (Version 1)
Quarter: 2013Q4

REPORT INFORMATION
  Report Type: Spontaneous
  Country: TW (occurrence: TW)
  Receive Date: 20131105
  Receipt Date: 20131105
  Transmission Date: 20140711
  Serious: Yes (Other)
  Sender: FDA-Public Use
  Company Number: PHHY2013TW121580

PATIENT
  Age: 59 Year
  Sex: Male

DRUGS (6)
  1. CICLOSPORIN [Suspect]
     Indication: GRAFT VERSUS HOST DISEASE
  2. PREDNISONE [Suspect]
     Indication: GRAFT VERSUS HOST DISEASE
  3. RITUXIMAB [Concomitant]
     Indication: LYMPHOMA
  4. CYCLOPHOSPHAMIDE [Concomitant]
     Indication: LYMPHOMA
  5. DOXORUBICIN [Concomitant]
     Indication: LYMPHOMA
  6. VINCRISTINE [Concomitant]
     Indication: LYMPHOMA

REACTIONS (5)
  - Post transplant lymphoproliferative disorder [Unknown]
  - Epstein-Barr virus infection [Unknown]
  - Diffuse large B-cell lymphoma [Unknown]
  - Disease progression [Unknown]
  - Convulsion [Unknown]
